FAERS Safety Report 5332220-6 (Version None)
Quarter: 2007Q2

REPORT INFORMATION
  Report Type: 
  Country: None (occurrence: None)
  Receive Date: 20070521
  Receipt Date: 20070509
  Transmission Date: 20071010
  Serious: Yes (Other)
  Sender: FDA-Public Use
  Company Number: 2007BI010286

PATIENT
  Sex: Female

DRUGS (4)
  1. NATALIZUMAB [Suspect]
     Indication: MULTIPLE SCLEROSIS
     Dates: start: 20050211, end: 20050211
  2. NATALIZUMAB [Suspect]
     Indication: MULTIPLE SCLEROSIS
     Dosage: 300 MG;QM;IV
     Route: 042
     Dates: start: 20060918
  3. SOLU-MEDROL [Concomitant]
  4. PREDNISONE TAB [Concomitant]

REACTIONS (3)
  - CONDITION AGGRAVATED [None]
  - DIABETES MELLITUS [None]
  - RENAL DISORDER [None]
